FAERS Safety Report 16637899 (Version 1)
Quarter: 2019Q3

REPORT INFORMATION
  Report Type: Spontaneous
  Country: US (occurrence: US)
  Receive Date: 20190726
  Receipt Date: 20190726
  Transmission Date: 20191004
  Serious: No
  Sender: FDA-Public Use
  Company Number: US-009507513-1907USA011012

PATIENT
  Sex: Male

DRUGS (7)
  1. FLONASE [Suspect]
     Active Substance: FLUTICASONE PROPIONATE
     Dosage: UNK
     Dates: start: 201904, end: 2019
  2. NASOCORT [Suspect]
     Active Substance: BUDESONIDE
     Dosage: UNK
     Dates: start: 201905
  3. MOMETASONE FUROATE. [Suspect]
     Active Substance: MOMETASONE FUROATE
     Dosage: UNK
     Dates: start: 2016, end: 2019
  4. ROSUVASTATIN CALCIUM. [Concomitant]
     Active Substance: ROSUVASTATIN CALCIUM
  5. NASONEX [Suspect]
     Active Substance: MOMETASONE FUROATE
     Indication: ASTHMA
     Dosage: ONE SPRAY EACH NOSTRIL TWICE A DAY
     Route: 045
     Dates: start: 2009, end: 201608
  6. AMLODIPINE [Concomitant]
     Active Substance: AMLODIPINE BESYLATE
  7. PROAIR HFA [Concomitant]
     Active Substance: ALBUTEROL SULFATE
     Dosage: 6 TIMES A YEAR

REACTIONS (6)
  - Rash [Recovered/Resolved]
  - Chest discomfort [Unknown]
  - Eye pruritus [Recovered/Resolved]
  - Dyspnoea [Unknown]
  - Chapped lips [Recovered/Resolved]
  - Lip dry [Recovered/Resolved]

NARRATIVE: CASE EVENT DATE: 2019
